FAERS Safety Report 16204844 (Version 1)
Quarter: 2019Q2

REPORT INFORMATION
  Report Type: Spontaneous
  Country: US (occurrence: US)
  Receive Date: 20190416
  Receipt Date: 20190416
  Transmission Date: 20190711
  Serious: No
  Sender: FDA-Public Use
  Company Number: US-BIOMARINAP-US-2019-122946

PATIENT
  Age: 5 Year
  Sex: Male
  Weight: 18 kg

DRUGS (1)
  1. KUVAN [Suspect]
     Active Substance: SAPROPTERIN DIHYDROCHLORIDE
     Indication: PHENYLKETONURIA
     Dosage: 400 MILLIGRAM, QD
     Route: 065
     Dates: start: 201507

REACTIONS (3)
  - Upper respiratory tract infection [Unknown]
  - Sinusitis [Unknown]
  - Ear infection [Unknown]

NARRATIVE: CASE EVENT DATE: 20190405
